FAERS Safety Report 17366806 (Version 2)
Quarter: 2020Q1

REPORT INFORMATION
  Report Type: Spontaneous
  Country: FR (occurrence: FR)
  Receive Date: 20200204
  Receipt Date: 20200313
  Transmission Date: 20200409
  Serious: Yes (Death, Hospitalization, Other)
  Sender: FDA-Public Use
  Company Number: NVSC2020FR026679

PATIENT
  Age: 38 Year
  Sex: Female

DRUGS (3)
  1. BETAMETHASONE VALERATE. [Suspect]
     Active Substance: BETAMETHASONE VALERATE
     Indication: PRURITUS
     Dosage: 7.2 KG PER YEAR
     Route: 061
  2. METHOTREXATE. [Suspect]
     Active Substance: METHOTREXATE
     Indication: RHEUMATOID ARTHRITIS
     Dosage: 10 MG
     Route: 065
  3. DEXERYL [Concomitant]
     Indication: PRODUCT USED FOR UNKNOWN INDICATION
     Dosage: UNK UNK, QD
     Route: 065

REACTIONS (17)
  - Multiple organ dysfunction syndrome [Fatal]
  - Osteoporosis [Fatal]
  - Skin infection [Fatal]
  - Skin atrophy [Fatal]
  - Wound necrosis [Fatal]
  - Intentional product misuse [Fatal]
  - Netherton^s syndrome [Fatal]
  - Fracture [Fatal]
  - Septic shock [Fatal]
  - Traumatic fracture [Fatal]
  - Intertrigo [Fatal]
  - Adrenocorticotropic hormone deficiency [Fatal]
  - Adrenal insufficiency [Fatal]
  - Fall [Fatal]
  - Fibula fracture [Fatal]
  - Renal failure [Fatal]
  - Cushing^s syndrome [Fatal]
